FAERS Safety Report 11336699 (Version 3)
Quarter: 2015Q3

REPORT INFORMATION
  Report Type: Report from Study
  Country: US (occurrence: US)
  Receive Date: 20150804
  Receipt Date: 20150831
  Transmission Date: 20151125
  Serious: Yes (Other)
  Sender: FDA-Public Use
  Company Number: US-BAXALTA-2015BLT000572

PATIENT

DRUGS (2)
  1. HYQVIA [Suspect]
     Active Substance: HUMAN IMMUNOGLOBULIN G\HYALURONIDASE RECOMBINANT HUMAN
     Indication: IMMUNODEFICIENCY COMMON VARIABLE
     Dosage: UNK, RAMP UP
     Route: 058
     Dates: start: 2015
  2. HYQVIA [Suspect]
     Active Substance: HUMAN IMMUNOGLOBULIN G\HYALURONIDASE RECOMBINANT HUMAN
     Indication: PRIMARY IMMUNODEFICIENCY SYNDROME
     Dosage: 32.5 G, 1X A MONTH
     Route: 058

REACTIONS (16)
  - Infusion site swelling [Not Recovered/Not Resolved]
  - Asthma [Unknown]
  - Malabsorption from administration site [Unknown]
  - Lung infection [Unknown]
  - Vomiting [Unknown]
  - Feeling abnormal [Unknown]
  - Fatigue [Recovered/Resolved]
  - Infusion site induration [Unknown]
  - Vision blurred [Unknown]
  - Gravitational oedema [Unknown]
  - Infusion site pain [Unknown]
  - Pyrexia [Unknown]
  - Back pain [Unknown]
  - Depression [Unknown]
  - Sinusitis [Unknown]
  - Diarrhoea [Unknown]

NARRATIVE: CASE EVENT DATE: 2015
